FAERS Safety Report 15599169 (Version 1)
Quarter: 2018Q4

REPORT INFORMATION
  Report Type: Spontaneous
  Country: US (occurrence: US)
  Receive Date: 20181108
  Receipt Date: 20181108
  Transmission Date: 20190205
  Serious: Yes (Other)
  Sender: FDA-Public Use
  Company Number: US-ELI_LILLY_AND_COMPANY-US201811002112

PATIENT
  Age: 35 Year
  Sex: Female

DRUGS (16)
  1. THORAZINE [CHLORPROMAZINE HYDROCHLORIDE] [Concomitant]
     Dosage: UNK
  2. DOCUSATE SODIUM. [Concomitant]
     Active Substance: DOCUSATE SODIUM
     Dosage: 200 MG, DAILY
     Dates: start: 20010110
  3. IBUPROFEN. [Concomitant]
     Active Substance: IBUPROFEN
     Dosage: 1800 MG, DAILY
     Route: 065
     Dates: start: 20010110
  4. SEROQUEL [Suspect]
     Active Substance: QUETIAPINE FUMARATE
     Indication: MENTAL DISORDER
     Dosage: UNK UNK, UNKNOWN
     Route: 048
     Dates: start: 1998
  5. METOCLOPRAMIDE HYDROCHLORIDE. [Concomitant]
     Active Substance: METOCLOPRAMIDE HYDROCHLORIDE
     Dosage: 0.5 DF, UNKNOWN
     Route: 048
     Dates: start: 20010110
  6. ZYPREXA [Suspect]
     Active Substance: OLANZAPINE
     Indication: PRODUCT USED FOR UNKNOWN INDICATION
     Dosage: 15 MG, UNKNOWN
     Route: 065
     Dates: start: 1998, end: 1999
  7. HALDOL DECAN [Concomitant]
     Dosage: 10 MG, DAILY
     Dates: start: 20010110
  8. PROMETHAZINE [Concomitant]
     Active Substance: PROMETHAZINE\PROMETHAZINE HYDROCHLORIDE
     Dosage: 25 MG Q4 H PRN
     Dates: start: 20010110
  9. SEROQUEL [Suspect]
     Active Substance: QUETIAPINE FUMARATE
     Dosage: 100-200 MG , DAILY
     Route: 048
     Dates: start: 2001
  10. ZYPREXA [Suspect]
     Active Substance: OLANZAPINE
     Indication: PRODUCT USED FOR UNKNOWN INDICATION
     Dosage: 7.5 MG, DAILY
     Route: 065
     Dates: start: 19991227, end: 200104
  11. VITAMIIN E [Concomitant]
     Dosage: UNK
     Dates: start: 19991227
  12. AMILORIDE HYDROCHLORIDE. [Concomitant]
     Active Substance: AMILORIDE HYDROCHLORIDE
     Dosage: 5 MG, DAILY
     Dates: start: 19991227
  13. LITHIUM. [Concomitant]
     Active Substance: LITHIUM
     Dosage: 600 MG, DAILY
     Dates: start: 19991227
  14. TRIHEXYPHENIDYL HYDROCHLORIDE. [Concomitant]
     Active Substance: TRIHEXYPHENIDYL HYDROCHLORIDE
     Dosage: 0.5 DF, TID
     Dates: start: 20010110
  15. LANSOPRAZOLE. [Concomitant]
     Active Substance: LANSOPRAZOLE
     Dosage: 30 MG, DAILY
     Dates: start: 20010110
  16. HYDROXYZINE PAMOATE. [Concomitant]
     Active Substance: HYDROXYZINE PAMOATE
     Dosage: 50 MG 2 HS
     Dates: start: 20010110

REACTIONS (2)
  - Diabetes mellitus [Unknown]
  - Maternal exposure during pregnancy [Unknown]

NARRATIVE: CASE EVENT DATE: 1999
